FAERS Safety Report 7412328-1 (Version None)
Quarter: 2011Q2

REPORT INFORMATION
  Report Type: 
  Country: None (occurrence: None)
  Receive Date: 20110413
  Receipt Date: 20110405
  Transmission Date: 20111010
  Serious: Yes (Other)
  Sender: FDA-Public Use
  Company Number: AT-ROCHE-769309

PATIENT
  Sex: Female
  Weight: 50 kg

DRUGS (7)
  1. AVASTIN [Suspect]
     Route: 042
     Dates: start: 20071101, end: 20081224
  2. VINORELBIN [Concomitant]
     Dosage: FREQUENCY: D1, D8, D22
     Route: 042
     Dates: start: 20071101, end: 20081114
  3. SELOKEN [Concomitant]
     Route: 048
  4. AVASTIN [Suspect]
     Route: 042
  5. RAMIPRIL [Concomitant]
     Route: 048
  6. GEMCITABINE [Concomitant]
     Dosage: FREQUENCY: D1, D8, D22
     Route: 042
     Dates: start: 20071101, end: 20081114
  7. NORVASC [Concomitant]
     Route: 048

REACTIONS (1)
  - PNEUMOTHORAX [None]
